FAERS Safety Report 16369924 (Version 1)
Quarter: 2019Q2

REPORT INFORMATION
  Report Type: Spontaneous
  Country: US (occurrence: US)
  Receive Date: 20190530
  Receipt Date: 20190530
  Transmission Date: 20190711
  Serious: Yes (Other)
  Sender: FDA-Public Use
  Company Number: US-MALLINCKRODT-T201903940

PATIENT
  Age: 57 Year
  Sex: Male

DRUGS (2)
  1. MORPHINE [Suspect]
     Active Substance: MORPHINE
     Indication: NECK PAIN
     Dosage: 120 MG, TID
     Route: 065
  2. MORPHINE [Suspect]
     Active Substance: MORPHINE
     Indication: RADICULOPATHY

REACTIONS (2)
  - Condition aggravated [Unknown]
  - Sleep apnoea syndrome [Unknown]
